FAERS Safety Report 24388700 (Version 1)
Quarter: 2024Q4

REPORT INFORMATION
  Report Type: Spontaneous
  Country: CN (occurrence: CN)
  Receive Date: 20241002
  Receipt Date: 20241002
  Transmission Date: 20250114
  Serious: Yes (Other)
  Sender: EISAI
  Company Number: CN-Eisai-EC-2024-175267

PATIENT
  Age: 54 Year
  Sex: Female
  Weight: 52.5 kg

DRUGS (4)
  1. ERIBULIN [Suspect]
     Active Substance: ERIBULIN
     Indication: Breast cancer
     Route: 042
     Dates: start: 20240813, end: 20240820
  2. CATEQUENTINIB DIHYDROCHLORIDE [Suspect]
     Active Substance: CATEQUENTINIB DIHYDROCHLORIDE
     Indication: Breast cancer
     Route: 048
     Dates: start: 20240813, end: 20240823
  3. CAPECITABINE [Suspect]
     Active Substance: CAPECITABINE
     Indication: Breast cancer
     Route: 048
     Dates: start: 20240813, end: 20240823
  4. PENPULIMAB [Suspect]
     Active Substance: PENPULIMAB
     Indication: Breast cancer
     Route: 041
     Dates: start: 20240814

REACTIONS (1)
  - Myelosuppression [Recovering/Resolving]

NARRATIVE: CASE EVENT DATE: 20240823
